FAERS Safety Report 21351190 (Version 3)
Quarter: 2022Q4

REPORT INFORMATION
  Report Type: Report from Study
  Country: DE (occurrence: DE)
  Receive Date: 20220919
  Receipt Date: 20221017
  Transmission Date: 20230113
  Serious: Yes (Hospitalization, Other)
  Sender: FDA-Public Use
  Company Number: DE-002147023-NVSC2019DE050886

PATIENT
  Sex: Female
  Weight: 63 kg

DRUGS (4)
  1. LETROZOLE [Suspect]
     Active Substance: LETROZOLE
     Indication: Breast cancer metastatic
     Dosage: 2.5 MG, QD
     Route: 048
     Dates: start: 20180611
  2. KISQALI [Suspect]
     Active Substance: RIBOCICLIB
     Indication: Breast cancer metastatic
     Dosage: 600 MG, QD (ADMIN. SCHEME 21D INTAKE, 7D PAUSE)
     Route: 048
     Dates: start: 20180611, end: 20190208
  3. KISQALI [Suspect]
     Active Substance: RIBOCICLIB
     Dosage: 600 MG, QD (ADMIN. SCHEME 21D INTAKE, 7D PAUSE)
     Route: 048
     Dates: start: 20190216, end: 20191221
  4. KISQALI [Suspect]
     Active Substance: RIBOCICLIB
     Dosage: 400 MG, QD (ADMIN. SCHEME 21D INTAKE, 7D PAUSE)
     Route: 048
     Dates: start: 20191230

REACTIONS (5)
  - Postmenopausal haemorrhage [Recovering/Resolving]
  - Second primary malignancy [Unknown]
  - Uterine cancer [Recovering/Resolving]
  - Urinary tract infection [Recovering/Resolving]
  - Nausea [Recovered/Resolved]

NARRATIVE: CASE EVENT DATE: 20181101
